FAERS Safety Report 6371545-2 (Version None)
Quarter: 2009Q3

REPORT INFORMATION
  Report Type: 
  Country: None (occurrence: None)
  Receive Date: 20090923
  Receipt Date: 20071120
  Transmission Date: 20100115
  Serious: Yes (Hospitalization)
  Sender: FDA-Public Use
  Company Number: US-ASTRAZENECA-2007UW19285

PATIENT
  Age: 16316 Day
  Sex: Male
  Weight: 89.8 kg

DRUGS (19)
  1. SEROQUEL [Suspect]
     Indication: SLEEP DISORDER
     Route: 048
     Dates: start: 20000101, end: 20070201
  2. SEROQUEL [Suspect]
     Dosage: 50- 800 MG
     Route: 048
  3. PAXIL [Concomitant]
     Dosage: 20 MG, 30 MG, 50 MG DAILY
     Route: 048
  4. PROTONIX [Concomitant]
     Route: 048
     Dates: start: 20040206
  5. TOPROL-XL [Concomitant]
     Dosage: 25-100 MG
     Route: 048
  6. NEURONTIN [Concomitant]
     Indication: NEURALGIA
     Route: 048
  7. KLONOPIN [Concomitant]
     Dosage: 1-4 MG
     Route: 048
  8. LIPITOR [Concomitant]
     Dosage: 10-40 MG DAILY
     Route: 048
  9. LOPRESSOR [Concomitant]
     Dosage: 25-100 MG
     Route: 048
  10. ASPIRIN [Concomitant]
     Dosage: 81-162 MG, EVERY DAY
     Route: 048
  11. ACCUPRIL [Concomitant]
     Dosage: 2.5-40 MG, EVERY DAY
     Route: 048
  12. HYDROXYZINE [Concomitant]
     Route: 048
  13. PLAVIX [Concomitant]
     Route: 048
  14. TRICOR [Concomitant]
     Route: 048
  15. PRINIVIL [Concomitant]
     Route: 048
  16. LEVAQUIN [Concomitant]
     Dosage: 500-750 MG, DAILY
     Route: 048
  17. METFORMIN HCL [Concomitant]
     Indication: HYPERGLYCAEMIA
     Dosage: 500-1000 MG, TWO TIMES A DAY
     Route: 065
  18. GLUCOTROL XL [Concomitant]
     Route: 065
  19. PANCREASE [Concomitant]
     Route: 048

REACTIONS (3)
  - DIABETES MELLITUS [None]
  - PANCREATITIS ACUTE [None]
  - TYPE 2 DIABETES MELLITUS [None]
